FAERS Safety Report 21674872 (Version 1)
Quarter: 2022Q4

REPORT INFORMATION
  Report Type: Spontaneous
  Country: DE (occurrence: DE)
  Receive Date: 20221202
  Receipt Date: 20221202
  Transmission Date: 20230113
  Serious: Yes (Death, Other)
  Sender: FDA-Public Use
  Company Number: DE-002147023-NVSC2022DE279687

PATIENT
  Sex: Male
  Weight: 145 kg

DRUGS (5)
  1. ERELZI [Suspect]
     Active Substance: ETANERCEPT-SZZS
     Indication: Psoriasis
     Dosage: 50 MG
     Route: 058
     Dates: start: 20180219
  2. ELIQUIS [Concomitant]
     Active Substance: APIXABAN
     Indication: Cardiac failure
     Dosage: 5 MG
     Route: 048
  3. RAMIPRIL [Concomitant]
     Active Substance: RAMIPRIL
     Indication: Cardiac failure
     Dosage: 2.5 MG
     Route: 048
  4. TILIDINE [Concomitant]
     Active Substance: TILIDINE
     Indication: Pain
     Dosage: UNK (100/8 MG)
     Route: 048
  5. METAMIZOLE [Concomitant]
     Active Substance: METAMIZOLE
     Indication: Pain
     Dosage: 500 MG
     Route: 048

REACTIONS (2)
  - Death [Fatal]
  - Tachycardia induced cardiomyopathy [Unknown]

NARRATIVE: CASE EVENT DATE: 20181201
